FAERS Safety Report 11183996 (Version 2)
Quarter: 2015Q2

REPORT INFORMATION
  Report Type: Report from Study
  Country: JP (occurrence: None)
  Receive Date: 20150610
  Receipt Date: 20150622
  Transmission Date: 20150821
  Serious: Yes (Death, Other)
  Sender: FDA-Public Use
  Company Number: 2015-11484

PATIENT
  Age: 65 Year
  Sex: Male

DRUGS (1)
  1. EYLEA [Suspect]
     Active Substance: AFLIBERCEPT
     Indication: AGE-RELATED MACULAR DEGENERATION
     Dosage: , INTRAOCULAR
     Route: 031
     Dates: end: 20150225

REACTIONS (1)
  - Death [None]

NARRATIVE: CASE EVENT DATE: 201505
